FAERS Safety Report 7316160-9 (Version None)
Quarter: 2011Q1

REPORT INFORMATION
  Report Type: 
  Country: None (occurrence: None)
  Receive Date: 20110225
  Receipt Date: 20110217
  Transmission Date: 20110831
  Serious: Yes (Other)
  Sender: FDA-Public Use
  Company Number: US-PURDUE-USA-2011-0064538

PATIENT
  Age: 52 Year
  Sex: Female

DRUGS (3)
  1. CYMBALTA [Concomitant]
     Indication: PRODUCT USED FOR UNKNOWN INDICATION
  2. OXYCODONE HCL [Concomitant]
     Indication: PRODUCT USED FOR UNKNOWN INDICATION
     Dosage: 5 MG, Q4H
  3. OXYCONTIN [Suspect]
     Indication: PAIN
     Dosage: UNK, SEE TEXT

REACTIONS (4)
  - PAIN [None]
  - SURGERY [None]
  - HYPERHIDROSIS [None]
  - SOMNOLENCE [None]
